FAERS Safety Report 6794955-8 (Version None)
Quarter: 2010Q2

REPORT INFORMATION
  Report Type: 
  Country: None (occurrence: None)
  Receive Date: 20100625
  Receipt Date: 20100614
  Transmission Date: 20101027
  Serious: Yes (Death)
  Sender: FDA-Public Use
  Company Number: US-PFIZER INC-2010075016

PATIENT
  Sex: Male
  Weight: 77.098 kg

DRUGS (2)
  1. XALATAN [Suspect]
     Indication: EYE PAIN
     Dosage: UNK
     Route: 047
     Dates: start: 19980101
  2. XALATAN [Suspect]
     Indication: GLAUCOMA

REACTIONS (1)
  - DEATH [None]
